FAERS Safety Report 21147278 (Version 5)
Quarter: 2022Q4

REPORT INFORMATION
  Report Type: Report from Study
  Country: US (occurrence: US)
  Receive Date: 20220729
  Receipt Date: 20221226
  Transmission Date: 20230112
  Serious: No
  Sender: FDA-Public Use
  Company Number: US-NOVARTISTESTPH-NVSC2022US171530

PATIENT
  Age: 40 Year
  Sex: Female

DRUGS (2)
  1. KESIMPTA [Suspect]
     Active Substance: OFATUMUMAB
     Indication: Relapsing multiple sclerosis
     Dosage: 20 MG, QMO
     Route: 058
     Dates: start: 20220707
  2. ISONIAZID [Concomitant]
     Active Substance: ISONIAZID
     Indication: Tuberculosis
     Dosage: 30 MG, QD
     Route: 065
     Dates: start: 20220727

REACTIONS (6)
  - Influenza like illness [Unknown]
  - Myalgia [Unknown]
  - Pyrexia [Unknown]
  - Headache [Unknown]
  - Decreased appetite [Unknown]
  - Back pain [Unknown]

NARRATIVE: CASE EVENT DATE: 20220726
